FAERS Safety Report 9051854 (Version 1)
Quarter: 2013Q1

REPORT INFORMATION
  Report Type: Spontaneous
  Country: IL (occurrence: IL)
  Receive Date: 20130207
  Receipt Date: 20130207
  Transmission Date: 20140127
  Serious: Yes (Hospitalization)
  Sender: FDA-Public Use
  Company Number: IL-AMGEN-ISRSP2013004207

PATIENT
  Age: 45 Year
  Sex: Female

DRUGS (3)
  1. NEULASTIM [Suspect]
     Indication: PROPHYLAXIS
     Dosage: UNK
     Route: 065
  2. ADRIAMYCIN                         /00330901/ [Concomitant]
     Indication: BREAST CANCER
     Dosage: UNK UNK, Q3WK
  3. CYCLOPHOSPHAMIDE [Concomitant]
     Indication: BREAST CANCER
     Dosage: UNK UNK, Q3WK

REACTIONS (1)
  - Febrile neutropenia [Recovered/Resolved]
